FAERS Safety Report 7522156-4 (Version None)
Quarter: 2011Q2

REPORT INFORMATION
  Report Type: 
  Country: None (occurrence: None)
  Receive Date: 20110603
  Receipt Date: 20110519
  Transmission Date: 20111010
  Serious: Yes (Other)
  Sender: FDA-Public Use
  Company Number: US-BAYER-2011-044050

PATIENT
  Sex: Female

DRUGS (2)
  1. CADUET [Suspect]
  2. ALEVE (CAPLET) [Suspect]
     Indication: ARTHRITIS

REACTIONS (1)
  - ARTHRITIS [None]
